FAERS Safety Report 8254927-3 (Version None)
Quarter: 2012Q2

REPORT INFORMATION
  Report Type: 
  Country: None (occurrence: None)
  Receive Date: 20120403
  Receipt Date: 20120328
  Transmission Date: 20120825
  Serious: No
  Sender: FDA-Public Use
  Company Number: US-PFIZER INC-2012079994

PATIENT
  Sex: Male
  Weight: 83.9 kg

DRUGS (7)
  1. ZOLOFT [Suspect]
     Indication: DEPRESSION
     Dosage: 25 MG, DAILY
     Dates: start: 20100101, end: 20100101
  2. ZOLOFT [Suspect]
     Dosage: 50 MG, DAILY
     Dates: start: 20100101, end: 20100101
  3. PRISTIQ [Suspect]
     Indication: PAIN
     Dosage: UNK, 3X/DAY
     Route: 048
  4. SIMVASTATIN [Concomitant]
     Indication: BLOOD CHOLESTEROL ABNORMAL
     Dosage: 10 MG, DAILY
  5. TRAMADOL [Concomitant]
     Indication: PAIN
     Dosage: UNK, DAILY
     Route: 048
  6. LISINOPRIL [Concomitant]
     Indication: HYPERTENSION
     Dosage: 10 MG, DAILY
  7. PRISTIQ [Suspect]
     Indication: DEPRESSION

REACTIONS (3)
  - MIGRAINE WITH AURA [None]
  - ANORGASMIA [None]
  - EJACULATION FAILURE [None]
